FAERS Safety Report 4860383-5 (Version None)
Quarter: 2005Q4

REPORT INFORMATION
  Report Type: 
  Country: None (occurrence: None)
  Receive Date: 20051215
  Receipt Date: 20051101
  Transmission Date: 20060501
  Serious: Yes (Other)
  Sender: FDA-Public Use
  Company Number: 2005BH002703

PATIENT
  Age: 76 Year
  Sex: Male

DRUGS (4)
  1. BALANCED SALT SOLUTION [Suspect]
     Indication: SURGERY
     Dosage: UNKNOWN
     Route: 065
  2. EPINEPHRINE [Concomitant]
  3. TEQUIN [Concomitant]
  4. KENALOG [Concomitant]

REACTIONS (3)
  - EYE INFECTION [None]
  - INSTILLATION SITE REACTION [None]
  - POSTOPERATIVE INFECTION [None]
